FAERS Safety Report 17920312 (Version 1)
Quarter: 2020Q2

REPORT INFORMATION
  Report Type: Spontaneous
  Country: US (occurrence: US)
  Receive Date: 20200620
  Receipt Date: 20200620
  Transmission Date: 20200714
  Serious: Yes (Death)
  Sender: FDA-Public Use
  Company Number: US-SPECGX-T202001117

PATIENT
  Age: 5 Year
  Sex: Female

DRUGS (1)
  1. METHADONE [Suspect]
     Active Substance: METHADONE HYDROCHLORIDE
     Indication: AGITATION
     Dosage: UNK
     Route: 065

REACTIONS (4)
  - Unresponsive to stimuli [Fatal]
  - Product use issue [Unknown]
  - Product use in unapproved indication [Unknown]
  - Toxicity to various agents [Fatal]
